FAERS Safety Report 4562863-9 (Version None)
Quarter: 2005Q1

REPORT INFORMATION
  Report Type: 
  Country: None (occurrence: None)
  Receive Date: 20050127
  Receipt Date: 20050117
  Transmission Date: 20050727
  Serious: Yes (Other)
  Sender: FDA-Public Use
  Company Number: PHBS2005JP01127

PATIENT
  Age: 65 Year
  Sex: Female

DRUGS (3)
  1. NEUER [Concomitant]
     Route: 048
  2. MEILAX [Concomitant]
     Route: 048
  3. VOLTAREN [Suspect]
     Indication: FACIAL PAIN
     Dosage: 75 MG/DAY
     Route: 048
     Dates: start: 20030812, end: 20030813

REACTIONS (2)
  - BLOOD PRESSURE DECREASED [None]
  - CIRCULATORY COLLAPSE [None]
